FAERS Safety Report 10728184 (Version 1)
Quarter: 2015Q1

REPORT INFORMATION
  Report Type: Spontaneous
  Country: FR (occurrence: FR)
  Receive Date: 20150121
  Receipt Date: 20150121
  Transmission Date: 20150721
  Serious: Yes (Death, Hospitalization, Other)
  Sender: FDA-Public Use
  Company Number: FR-ASTRAZENECA-2015SE05294

PATIENT
  Age: 28373 Day
  Sex: Male

DRUGS (4)
  1. INEXIUM [Suspect]
     Active Substance: ESOMEPRAZOLE
     Indication: PROPHYLAXIS AGAINST GASTROINTESTINAL ULCER
     Route: 048
  2. TAHOR [Interacting]
     Active Substance: ATORVASTATIN CALCIUM
     Indication: HYPERCHOLESTEROLAEMIA
     Route: 048
  3. TRAMADOL PARACETAMOL ARROW [Interacting]
     Active Substance: ACETAMINOPHEN\TRAMADOL
     Indication: ABDOMINAL PAIN
     Dosage: 37.5 MG/ 325 MG, MAXIMUM THREE DOSAGE FORMS  DAILY IF NEEDED
     Route: 048
  4. PREVISCAN [Interacting]
     Active Substance: FLUINDIONE
     Indication: ATRIAL FIBRILLATION
     Route: 048
     Dates: end: 20141201

REACTIONS (9)
  - Drug interaction [Unknown]
  - International normalised ratio increased [Unknown]
  - Shock [Fatal]
  - Shock haemorrhagic [None]
  - Renal impairment [None]
  - Haematuria [Fatal]
  - Overdose [None]
  - Anuria [Unknown]
  - Multi-organ failure [None]

NARRATIVE: CASE EVENT DATE: 20141201
